FAERS Safety Report 9668069 (Version 1)
Quarter: 2013Q4

REPORT INFORMATION
  Report Type: Spontaneous
  Country: IT (occurrence: IT)
  Receive Date: 20131104
  Receipt Date: 20131104
  Transmission Date: 20140711
  Serious: Yes (Other)
  Sender: FDA-Public Use
  Company Number: IT-SHIRE-ALL1-2013-07340

PATIENT
  Age: 60 Year
  Sex: Female

DRUGS (2)
  1. XAGRID [Suspect]
     Indication: ESSENTIAL THROMBOCYTHAEMIA
     Dosage: 3 MG, 1X/DAY:QD
     Route: 048
     Dates: start: 201003, end: 201111
  2. XAGRID [Suspect]
     Dosage: 1 MG, 1X/DAY:QD
     Route: 048
     Dates: start: 201111, end: 201201

REACTIONS (3)
  - Chronic myeloid leukaemia [Unknown]
  - Thrombocytopenia [Unknown]
  - Therapeutic response unexpected [Unknown]
